FAERS Safety Report 8509751-0 (Version None)
Quarter: 2012Q3

REPORT INFORMATION
  Report Type: 
  Country: None (occurrence: None)
  Receive Date: 20120713
  Receipt Date: 20120704
  Transmission Date: 20120928
  Serious: Yes (Hospitalization)
  Sender: FDA-Public Use
  Company Number: BE-BAXTER-2012BAX010461

PATIENT
  Sex: Male

DRUGS (2)
  1. FEIBA 1000 U, POUDRE ET SOLVANT POUR SOLUTION INJECTABLE [Suspect]
     Dosage: 3000 UE PER DAY
     Route: 042
     Dates: start: 20120703
  2. NOVOSEVEN [Suspect]
     Route: 065

REACTIONS (3)
  - HAEMORRHAGE [None]
  - ABDOMINAL PAIN [None]
  - PALLOR [None]
